FAERS Safety Report 17718057 (Version 4)
Quarter: 2020Q3

REPORT INFORMATION
  Report Type: Report from Study
  Country: CL (occurrence: CL)
  Receive Date: 20200428
  Receipt Date: 20200805
  Transmission Date: 20201102
  Serious: Yes (Other)
  Sender: FDA-Public Use
  Company Number: PHHY2019CL145895

PATIENT
  Age: 51 Year
  Sex: Female

DRUGS (8)
  1. KISQALI [Suspect]
     Active Substance: RIBOCICLIB
     Indication: BREAST CANCER
     Dosage: 400 MG
     Route: 048
     Dates: start: 20190516
  2. KISQALI [Suspect]
     Active Substance: RIBOCICLIB
     Dosage: 600 MG, UNK
     Route: 065
  3. OSTEOKER [Concomitant]
     Indication: BONE CANCER
     Dosage: 3 CYCLE AND THEN REST FOR A WHILE (EVERY THREE MONTH)
     Route: 042
  4. KISQALI [Suspect]
     Active Substance: RIBOCICLIB
     Dosage: 400 MG, QD
     Route: 048
  5. MISTLETOE [Concomitant]
     Active Substance: VISCUM ALBUM FRUITING TOP
     Indication: PRODUCT USED FOR UNKNOWN INDICATION
     Route: 065
  6. FEMARA [Suspect]
     Active Substance: LETROZOLE
     Indication: BREAST CANCER
     Route: 065
  7. KISQALI [Suspect]
     Active Substance: RIBOCICLIB
     Dosage: 400 MG
     Route: 048
     Dates: start: 20191109
  8. KISQALI [Suspect]
     Active Substance: RIBOCICLIB
     Dosage: UNK (DOSE REDUCED TO 2 TABLETS)
     Route: 048

REACTIONS (37)
  - Metastasis [Unknown]
  - White blood cell count increased [Unknown]
  - Platelet count decreased [Unknown]
  - White blood cell count decreased [Unknown]
  - Gait disturbance [Unknown]
  - Sinus bradycardia [Unknown]
  - Macrocytosis [Unknown]
  - Neutrophil toxic granulation present [Unknown]
  - Depressed mood [Unknown]
  - Anxiety [Unknown]
  - Eating disorder [Unknown]
  - Full blood count abnormal [Unknown]
  - Mean cell haemoglobin increased [Unknown]
  - Aspartate aminotransferase increased [Unknown]
  - Platelet count decreased [Recovered/Resolved]
  - Neutrophil count decreased [Unknown]
  - Metastases to bone [Unknown]
  - Neutrophil count decreased [Unknown]
  - Lymphocyte percentage abnormal [Unknown]
  - Illness [Unknown]
  - Overweight [Unknown]
  - Bone pain [Unknown]
  - Pain [Unknown]
  - Visual impairment [Unknown]
  - Mean cell volume increased [Unknown]
  - Polychromic red blood cells present [Unknown]
  - Red blood cell poikilocytes present [Unknown]
  - Red blood cell count increased [Unknown]
  - Mean cell volume increased [Unknown]
  - Inappropriate schedule of product administration [Unknown]
  - Lymphocyte percentage abnormal [Unknown]
  - Red blood cell count decreased [Unknown]
  - Red cell distribution width increased [Unknown]
  - Anisocytosis [Unknown]
  - Blood alkaline phosphatase decreased [Unknown]
  - Macrocytosis [Unknown]
  - Insomnia [Unknown]

NARRATIVE: CASE EVENT DATE: 201805
